FAERS Safety Report 18678455 (Version 1)
Quarter: 2020Q4

REPORT INFORMATION
  Report Type: Spontaneous
  Country: US (occurrence: US)
  Receive Date: 20201230
  Receipt Date: 20201230
  Transmission Date: 20210114
  Serious: No
  Sender: FDA-Public Use
  Company Number: US-LUPIN PHARMACEUTICALS INC.-2020-10882

PATIENT
  Age: 19 Year
  Sex: Female
  Weight: 38 kg

DRUGS (9)
  1. ISONIAZID. [Concomitant]
     Active Substance: ISONIAZID
     Indication: DISSEMINATED TUBERCULOSIS
     Dosage: 300 MILLIGRAM, QD
     Route: 065
  2. AMPICILLIN/SULBACTAM [Concomitant]
     Active Substance: AMPICILLIN SODIUM\SULBACTAM SODIUM
     Indication: PELVIC INFLAMMATORY DISEASE
     Dosage: UNK
     Route: 065
  3. RIFAMPICIN [Concomitant]
     Active Substance: RIFAMPIN
     Indication: DISSEMINATED TUBERCULOSIS
     Dosage: 600 MILLIGRAM, QD
     Route: 065
  4. LEVOFLOXACIN. [Concomitant]
     Active Substance: LEVOFLOXACIN
     Indication: DISSEMINATED TUBERCULOSIS
     Dosage: 750 MILLIGRAM, QD
     Route: 065
  5. ASPIRINE [Concomitant]
     Active Substance: ASPIRIN
     Indication: CEREBROVASCULAR ACCIDENT
     Dosage: 162 MILLIGRAM, QD
     Route: 065
  6. LINEZOLID. [Suspect]
     Active Substance: LINEZOLID
     Indication: TUBERCULOSIS
     Dosage: 600 MILLIGRAM, QD
     Route: 065
  7. DEXAMETHASONE. [Concomitant]
     Active Substance: DEXAMETHASONE
     Indication: ADJUVANT THERAPY
     Dosage: 0.4 MILLIGRAM/KILOGRAM, QD
     Route: 042
  8. DOXYCYCLINE. [Concomitant]
     Active Substance: DOXYCYCLINE
     Indication: PELVIC INFLAMMATORY DISEASE
     Dosage: UNK
     Route: 065
  9. METRONIDAZOLE. [Concomitant]
     Active Substance: METRONIDAZOLE
     Indication: PELVIC INFLAMMATORY DISEASE
     Dosage: UNK
     Route: 065

REACTIONS (1)
  - Anaemia [Unknown]
